FAERS Safety Report 6745216-4 (Version None)
Quarter: 2010Q2

REPORT INFORMATION
  Report Type: 
  Country: None (occurrence: None)
  Receive Date: 20100528
  Receipt Date: 20100525
  Transmission Date: 20101027
  Serious: Yes (Hospitalization)
  Sender: FDA-Public Use
  Company Number: US-BIOGENIDEC-2010BI010848

PATIENT
  Age: 58 Year
  Sex: Female
  Weight: 44 kg

DRUGS (1)
  1. AVONEX [Suspect]
     Indication: MULTIPLE SCLEROSIS
     Route: 030
     Dates: start: 20070925

REACTIONS (4)
  - EAR PAIN [None]
  - HAND FRACTURE [None]
  - WEIGHT DECREASED [None]
  - WRIST FRACTURE [None]
